FAERS Safety Report 21251037 (Version 1)
Quarter: 2022Q3

REPORT INFORMATION
  Report Type: Spontaneous
  Country: US (occurrence: US)
  Receive Date: 20220824
  Receipt Date: 20220824
  Transmission Date: 20221027
  Serious: No
  Sender: FDA-Public Use
  Company Number: US-JNJFOC-20220817147

PATIENT
  Age: 38 Year
  Sex: Male

DRUGS (18)
  1. PREZISTA [Suspect]
     Active Substance: DARUNAVIR ETHANOLATE
     Indication: HIV infection
     Route: 048
     Dates: start: 20080227, end: 20130331
  2. PREZISTA [Suspect]
     Active Substance: DARUNAVIR ETHANOLATE
     Route: 048
     Dates: start: 20130401
  3. EDURANT [Suspect]
     Active Substance: RILPIVIRINE HYDROCHLORIDE
     Indication: HIV infection
     Route: 048
     Dates: start: 20120905
  4. INTELENCE [Suspect]
     Active Substance: ETRAVIRINE
     Indication: HIV infection
     Route: 048
     Dates: start: 20101216, end: 20101223
  5. EMTRICITABINE\TENOFOVIR DISOPROXIL FUMARATE [Suspect]
     Active Substance: EMTRICITABINE\TENOFOVIR DISOPROXIL FUMARATE
     Indication: HIV infection
     Dosage: 1 DF
     Route: 048
     Dates: start: 20050609, end: 20170304
  6. ISENTRESS [Suspect]
     Active Substance: RALTEGRAVIR POTASSIUM
     Indication: HIV infection
     Route: 048
     Dates: start: 20090325, end: 20181031
  7. ISENTRESS [Suspect]
     Active Substance: RALTEGRAVIR POTASSIUM
     Route: 048
     Dates: start: 20181101
  8. NORVIR [Suspect]
     Active Substance: RITONAVIR
     Indication: HIV infection
     Route: 048
     Dates: start: 20050609, end: 20080226
  9. NORVIR [Suspect]
     Active Substance: RITONAVIR
     Route: 048
     Dates: start: 20080227, end: 20110524
  10. NORVIR [Suspect]
     Active Substance: RITONAVIR
     Route: 048
     Dates: start: 20110525
  11. REYATAZ [Suspect]
     Active Substance: ATAZANAVIR SULFATE
     Indication: HIV infection
     Route: 048
     Dates: start: 20050609, end: 20080226
  12. KALETRA [Suspect]
     Active Substance: LOPINAVIR\RITONAVIR
     Indication: HIV infection
     Route: 048
     Dates: start: 20031227, end: 20050608
  13. RETROVIR [Suspect]
     Active Substance: ZIDOVUDINE
     Indication: HIV infection
     Route: 048
     Dates: start: 20110119
  14. MARAVIROC [Concomitant]
     Active Substance: MARAVIROC
     Route: 065
     Dates: start: 20120905
  15. HEPSERA [Concomitant]
     Active Substance: ADEFOVIR DIPIVOXIL
     Route: 065
     Dates: start: 20111207
  16. ALLOPURINOL [Concomitant]
     Active Substance: ALLOPURINOL
     Route: 065
     Dates: start: 20060401
  17. AZITHROMYCIN DIHYDRATE [Concomitant]
     Active Substance: AZITHROMYCIN DIHYDRATE
     Route: 065
     Dates: start: 20120328, end: 20150727
  18. ZOPICLONE [Concomitant]
     Active Substance: ZOPICLONE
     Route: 065
     Dates: start: 20130401, end: 20171206

REACTIONS (14)
  - Blood bilirubin increased [Recovered/Resolved]
  - Vertigo [Recovering/Resolving]
  - Transaminases increased [Not Recovered/Not Resolved]
  - Blood triglycerides increased [Not Recovered/Not Resolved]
  - Gamma-glutamyltransferase increased [Not Recovered/Not Resolved]
  - Protein total increased [Recovering/Resolving]
  - Herpes zoster [Recovered/Resolved]
  - Drug eruption [Recovering/Resolving]
  - Gastrooesophageal reflux disease [Recovering/Resolving]
  - Oral candidiasis [Recovered/Resolved]
  - Hepatitis B DNA increased [Recovering/Resolving]
  - Hyperphosphatasaemia [Not Recovered/Not Resolved]
  - Obesity [Not Recovered/Not Resolved]
  - Dizziness [Recovered/Resolved]

NARRATIVE: CASE EVENT DATE: 20050713
